FAERS Safety Report 9951518 (Version 1)
Quarter: 2014Q1

REPORT INFORMATION
  Report Type: Report from Study
  Country: US (occurrence: US)
  Receive Date: 20140304
  Receipt Date: 20140304
  Transmission Date: 20141002
  Serious: No
  Sender: FDA-Public Use
  Company Number: US-ABBVIE-13P-163-1070379-00

PATIENT
  Age: 43 Year
  Sex: Male
  Weight: 86.26 kg

DRUGS (5)
  1. HUMIRA [Suspect]
     Indication: ANKYLOSING SPONDYLITIS
     Route: 058
     Dates: start: 201212
  2. HUMIRA [Suspect]
     Indication: IRITIS
  3. UNKNOWN MEDICATION [Concomitant]
     Indication: MIGRAINE
  4. NAPROSYN [Concomitant]
     Indication: ANKYLOSING SPONDYLITIS
  5. STEROIDS [Concomitant]
     Indication: IRITIS
     Route: 047

REACTIONS (2)
  - Off label use [Unknown]
  - Drug ineffective [Not Recovered/Not Resolved]
